FAERS Safety Report 13302655 (Version 13)
Quarter: 2018Q2

REPORT INFORMATION
  Report Type: Report from Study
  Country: US (occurrence: US)
  Receive Date: 20170307
  Receipt Date: 20180531
  Transmission Date: 20180711
  Serious: Yes (Other)
  Sender: FDA-Public Use
  Company Number: US-JNJFOC-20161223318

PATIENT
  Age: 73 Year
  Sex: Male

DRUGS (36)
  1. IMBRUVICA [Suspect]
     Active Substance: IBRUTINIB
     Indication: CHRONIC LYMPHOCYTIC LEUKAEMIA
     Route: 048
     Dates: start: 20160813, end: 20180426
  2. NORCO [Concomitant]
     Active Substance: ACETAMINOPHEN\HYDROCODONE BITARTRATE
  3. OXYCODONE [Concomitant]
     Active Substance: OXYCODONE
  4. VITAMIN C [Concomitant]
     Active Substance: ASCORBIC ACID
  5. LUMIGAN [Concomitant]
     Active Substance: BIMATOPROST
  6. LIDOCAINE. [Concomitant]
     Active Substance: LIDOCAINE
  7. MIRALAX [Concomitant]
     Active Substance: POLYETHYLENE GLYCOL 3350
  8. SILDENAFIL CITRATE. [Concomitant]
     Active Substance: SILDENAFIL CITRATE
  9. IMBRUVICA [Suspect]
     Active Substance: IBRUTINIB
     Indication: CHRONIC LYMPHOCYTIC LEUKAEMIA
     Route: 048
     Dates: start: 20160816, end: 201612
  10. ULTRAM [Concomitant]
     Active Substance: TRAMADOL HYDROCHLORIDE
  11. HYDROXYCHLOROQUINE SULFATE. [Concomitant]
     Active Substance: HYDROXYCHLOROQUINE SULFATE
  12. NORVASC [Concomitant]
     Active Substance: AMLODIPINE BESYLATE
  13. LOSARTAN. [Concomitant]
     Active Substance: LOSARTAN
     Indication: BLOOD PRESSURE MEASUREMENT
  14. SENNA [Concomitant]
     Active Substance: SENNA LEAF\SENNOSIDES\SENNOSIDES A AND B
  15. CODEINE [Concomitant]
     Active Substance: CODEINE
  16. APAP [Concomitant]
     Active Substance: ACETAMINOPHEN
  17. MAGNESIUM [Concomitant]
     Active Substance: MAGNESIUM
  18. LACTULOSE. [Concomitant]
     Active Substance: LACTULOSE
  19. NICOTINE. [Concomitant]
     Active Substance: NICOTINE
  20. BISACODYL. [Concomitant]
     Active Substance: BISACODYL
  21. COLACE [Concomitant]
     Active Substance: DOCUSATE SODIUM
  22. DORZOLAMIDE [Concomitant]
     Active Substance: DORZOLAMIDE
  23. ALPHAGAN P [Concomitant]
     Active Substance: BRIMONIDINE TARTRATE
  24. FLOMAX [Concomitant]
     Active Substance: TAMSULOSIN HYDROCHLORIDE
  25. PARACETAMOL WITH CODEINE PHOSPHATE [Concomitant]
     Active Substance: ACETAMINOPHEN\CODEINE PHOSPHATE
  26. FERROUS FUMARATE [Concomitant]
     Active Substance: FERROUS FUMARATE
  27. TYLENOL [Concomitant]
     Active Substance: ACETAMINOPHEN
     Indication: PAIN
  28. IMBRUVICA [Suspect]
     Active Substance: IBRUTINIB
     Indication: CHRONIC LYMPHOCYTIC LEUKAEMIA
     Route: 048
     Dates: start: 20160809
  29. IMBRUVICA [Suspect]
     Active Substance: IBRUTINIB
     Indication: CHRONIC LYMPHOCYTIC LEUKAEMIA
     Route: 048
     Dates: start: 2017
  30. MOTRIN [Concomitant]
     Active Substance: IBUPROFEN
  31. IRON [Concomitant]
     Active Substance: IRON
  32. GABAPENTIN. [Concomitant]
     Active Substance: GABAPENTIN
  33. OXYBUTYNIN CHLORIDE. [Concomitant]
     Active Substance: OXYBUTYNIN CHLORIDE
  34. FLONASE [Concomitant]
     Active Substance: FLUTICASONE PROPIONATE
  35. ACETAMINOPHEN. [Concomitant]
     Active Substance: ACETAMINOPHEN
  36. LINZESS [Concomitant]
     Active Substance: LINACLOTIDE

REACTIONS (37)
  - Abdominal distension [Not Recovered/Not Resolved]
  - Pain [Not Recovered/Not Resolved]
  - Nail ridging [Unknown]
  - Parosmia [Unknown]
  - Fall [Unknown]
  - Constipation [Unknown]
  - Intraocular pressure increased [Unknown]
  - Paraesthesia [Not Recovered/Not Resolved]
  - Alopecia [Unknown]
  - Skin hypertrophy [Unknown]
  - Anxiety [Unknown]
  - Dry eye [Unknown]
  - Onychoclasis [Unknown]
  - Lung disorder [Unknown]
  - Glaucoma [Unknown]
  - Palpitations [Not Recovered/Not Resolved]
  - Vision blurred [Recovering/Resolving]
  - Joint injury [Unknown]
  - Product physical issue [Unknown]
  - Joint swelling [Recovering/Resolving]
  - Muscle spasms [Not Recovered/Not Resolved]
  - Dyspnoea exertional [Unknown]
  - Cardiac operation [Unknown]
  - Poor quality sleep [Unknown]
  - Dry skin [Unknown]
  - Balance disorder [Unknown]
  - Dysgeusia [Unknown]
  - Headache [Not Recovered/Not Resolved]
  - Limb operation [Unknown]
  - Hair texture abnormal [Unknown]
  - Hair colour changes [Unknown]
  - Fatigue [Not Recovered/Not Resolved]
  - Skin fissures [Unknown]
  - Nail disorder [Unknown]
  - Skin haemorrhage [Unknown]
  - Hypoaesthesia [Not Recovered/Not Resolved]
  - Arthropathy [Unknown]

NARRATIVE: CASE EVENT DATE: 201612
